FAERS Safety Report 14480820 (Version 2)
Quarter: 2018Q1

REPORT INFORMATION
  Report Type: Spontaneous
  Country: GB (occurrence: GB)
  Receive Date: 20180202
  Receipt Date: 20180307
  Transmission Date: 20180509
  Serious: Yes (Hospitalization, Other)
  Sender: FDA-Public Use
  Company Number: GB-TEVA-343640ISR

PATIENT
  Age: 15 Year
  Sex: Female

DRUGS (3)
  1. LAMOTRIGINE. [Suspect]
     Active Substance: LAMOTRIGINE
     Indication: EPILEPSY
     Dosage: 50 MILLIGRAM DAILY; FREQUENCY OF PRODUCT : AD NO OF SEPARATE DOSES : 1 INTERVAL : 2 DAYS
     Route: 048
     Dates: end: 20120520
  2. LAMOTRIGINE. [Suspect]
     Active Substance: LAMOTRIGINE
     Route: 048
     Dates: start: 20120521, end: 20120601
  3. SODIUM VALPROATE [Concomitant]
     Active Substance: VALPROATE SODIUM
     Indication: EPILEPSY
     Dosage: INCREASED FROM 200MG TWICE A DAY TO 800MG TWICE A DAY (THIS WAS DONE GRADUALLY)
     Route: 005

REACTIONS (6)
  - Stevens-Johnson syndrome [Recovering/Resolving]
  - Rash [Not Recovered/Not Resolved]
  - Pyrexia [Unknown]
  - Conjunctival disorder [Unknown]
  - Platelet count decreased [Not Recovered/Not Resolved]
  - Oral disorder [Unknown]

NARRATIVE: CASE EVENT DATE: 20120602
